FAERS Safety Report 8616856-2 (Version None)
Quarter: 2012Q3

REPORT INFORMATION
  Report Type: 
  Country: None (occurrence: None)
  Receive Date: 20120823
  Receipt Date: 20120821
  Transmission Date: 20120928
  Serious: Yes (Disabling, Other)
  Sender: FDA-Public Use
  Company Number: US-PFIZER INC-2012013792

PATIENT
  Age: 76 Year
  Sex: Female
  Weight: 108 kg

DRUGS (3)
  1. PLAVIX [Suspect]
     Indication: ATRIAL FIBRILLATION
     Dosage: 75 MG, DAILY
     Route: 048
     Dates: end: 20120101
  2. ALTACE [Concomitant]
     Indication: BLOOD PRESSURE ABNORMAL
     Dosage: 10 MG DAILY
     Route: 048
  3. LIPITOR [Suspect]
     Indication: BLOOD CHOLESTEROL INCREASED
     Dosage: 20 MG DAILY
     Route: 048
     Dates: end: 20120101

REACTIONS (3)
  - MALIGNANT MELANOMA [None]
  - LIMB ASYMMETRY [None]
  - EAR NEOPLASM MALIGNANT [None]
